FAERS Safety Report 25439648 (Version 1)
Quarter: 2025Q2

REPORT INFORMATION
  Report Type: Spontaneous
  Country: FR (occurrence: FR)
  Receive Date: 20250616
  Receipt Date: 20250616
  Transmission Date: 20250717
  Serious: Yes (Hospitalization, Other)
  Sender: MYLAN
  Company Number: None

PATIENT
  Age: 68 Year
  Sex: Female
  Weight: 53.9 kg

DRUGS (4)
  1. PREGABALIN [Suspect]
     Active Substance: PREGABALIN
     Indication: Post herpetic neuralgia
  2. LEVETIRACETAM [Suspect]
     Active Substance: LEVETIRACETAM
     Indication: Epilepsy
     Dosage: 1 GRAM, QD
     Dates: start: 202505
  3. ACETAMINOPHEN [Suspect]
     Active Substance: ACETAMINOPHEN
     Indication: Post herpetic neuralgia
  4. CODEINE [Suspect]
     Active Substance: CODEINE
     Indication: Post herpetic neuralgia

REACTIONS (2)
  - Encephalopathy [Recovered/Resolved]
  - Depressed level of consciousness [Recovered/Resolved]

NARRATIVE: CASE EVENT DATE: 20250515
